FAERS Safety Report 18759716 (Version 1)
Quarter: 2021Q1

REPORT INFORMATION
  Report Type: Spontaneous
  Country: RO (occurrence: RO)
  Receive Date: 20210120
  Receipt Date: 20210120
  Transmission Date: 20210419
  Serious: Yes (Other)
  Sender: FDA-Public Use
  Company Number: RO-SUN PHARMACEUTICAL INDUSTRIES LTD-2021RR-275999

PATIENT
  Age: 63 Year
  Sex: Female

DRUGS (2)
  1. ERLOTINIB [Suspect]
     Active Substance: ERLOTINIB
     Indication: LUNG CANCER METASTATIC
     Dosage: 150 MILLIGRAM, DAILY
     Route: 065
  2. ZOLEDRONIC ACID [Suspect]
     Active Substance: ZOLEDRONIC ACID
     Indication: LUNG CANCER METASTATIC
     Dosage: EVERY 4 WEEKS
     Route: 065

REACTIONS (3)
  - Bone pain [Unknown]
  - Disease progression [Unknown]
  - Drug resistance [Unknown]

NARRATIVE: CASE EVENT DATE: 201911
